FAERS Safety Report 4463979-8 (Version None)
Quarter: 2004Q3

REPORT INFORMATION
  Report Type: 
  Country: None (occurrence: None)
  Receive Date: 20040929
  Receipt Date: 20040917
  Transmission Date: 20050211
  Serious: Yes (Other)
  Sender: FDA-Public Use
  Company Number: 2004234429US

PATIENT
  Sex: Female
  Weight: 102 kg

DRUGS (5)
  1. DAYPRO [Suspect]
  2. PROTONIX [Concomitant]
  3. SYNTHROID [Concomitant]
  4. PREMARIN [Concomitant]
  5. TYLENOL [Concomitant]

REACTIONS (2)
  - ATRIAL FIBRILLATION [None]
  - DUODENAL ULCER [None]
